FAERS Safety Report 7084152-3 (Version None)
Quarter: 2010Q4

REPORT INFORMATION
  Report Type: 
  Country: None (occurrence: None)
  Receive Date: 20101104
  Receipt Date: 20101021
  Transmission Date: 20110411
  Serious: Yes (Hospitalization)
  Sender: FDA-Public Use
  Company Number: DE-AMGEN-DEUCT2010001029

PATIENT

DRUGS (10)
  1. ENBREL [Suspect]
     Indication: RHEUMATOID ARTHRITIS
     Dosage: 25 MG, QWK
     Route: 058
     Dates: start: 20100303, end: 20100101
  2. ENBREL [Suspect]
     Indication: POLYARTHRITIS
  3. RANITIDINE [Concomitant]
  4. FORTEO [Concomitant]
     Dosage: UNKNOWN
     Route: 058
  5. ACETYLSALICYLIC ACID [Concomitant]
  6. VIGANTOLETTEN [Concomitant]
     Dosage: UNKNOWN
  7. FENTANYL [Concomitant]
     Dosage: 100 MG (FREQUENCY UNKNOWN)
  8. SIMVASTATIN [Concomitant]
  9. CLOPIDOGREL [Concomitant]
  10. GLUCOCORTICOIDS [Concomitant]

REACTIONS (1)
  - SKIN ULCER [None]
